FAERS Safety Report 18415259 (Version 1)
Quarter: 2020Q4

REPORT INFORMATION
  Report Type: Spontaneous
  Country: US (occurrence: US)
  Receive Date: 20201022
  Receipt Date: 20201022
  Transmission Date: 20210114
  Serious: Yes (Other)
  Sender: FDA-Public Use
  Company Number: US-BAYER-2020-222903

PATIENT
  Age: 38 Year
  Sex: Female

DRUGS (3)
  1. MONTELUKAST [Concomitant]
     Active Substance: MONTELUKAST SODIUM
     Indication: ASPIRIN-EXACERBATED RESPIRATORY DISEASE
  2. ACETYLSALICYLIC ACID [Suspect]
     Active Substance: ASPIRIN
     Indication: IMMUNE TOLERANCE INDUCTION
     Route: 048
  3. MEPOLIZUMAB [Concomitant]
     Active Substance: MEPOLIZUMAB
     Indication: ASPIRIN-EXACERBATED RESPIRATORY DISEASE

REACTIONS (6)
  - Forced expiratory volume decreased [Unknown]
  - Pruritus [Unknown]
  - Vomiting [Unknown]
  - Abdominal pain [Unknown]
  - Wheezing [Unknown]
  - Nausea [Unknown]
